FAERS Safety Report 9248286 (Version 1)
Quarter: 2013Q1

REPORT INFORMATION
  Report Type: Spontaneous
  Country: US (occurrence: None)
  Receive Date: 20130305
  Receipt Date: 20130305
  Transmission Date: 20140127
  Serious: Yes (Hospitalization, Other)
  Sender: FDA-Public Use
  Company Number: 163-21880-12101029

PATIENT
  Age: 80 Year
  Sex: Male

DRUGS (13)
  1. REVLIMID [Suspect]
     Indication: PLASMA CELL MYELOMA
     Dosage: 15 MG, 21 IN 28 D, PO
     Dates: start: 20120913
  2. AMLODIPINE (AMLODIPINE) [Concomitant]
  3. ARANESP (DARBEPOETIN ALFA) [Concomitant]
  4. ASPIRIN (ACETYLSALICYLIC ACID) [Concomitant]
  5. CENTRUM (CENTRUM) [Concomitant]
  6. EYE HEALTH (TETRYZOLINE HYDROCHLORIDE) [Concomitant]
  7. METOPROLOL (METOPROLOL) [Concomitant]
  8. NEUPOGEN (FILGRASTIM) [Concomitant]
  9. PLAVIX (CLOPIDOGREL SULFATE) [Concomitant]
  10. SIMVASTATIN (SIMVASTATIN) [Concomitant]
  11. VELCADE (BORTEZOMIB) [Concomitant]
  12. ZOMETA (ZOLEDRONIC ACID) [Concomitant]
  13. GLYBURIDE (GLIBENCLAMIDE) [Concomitant]

REACTIONS (3)
  - Platelet count decreased [None]
  - Neutrophil count decreased [None]
  - White blood cell count decreased [None]
